FAERS Safety Report 17740736 (Version 1)
Quarter: 2020Q2

REPORT INFORMATION
  Report Type: Spontaneous
  Country: GB (occurrence: GB)
  Receive Date: 20200504
  Receipt Date: 20200504
  Transmission Date: 20200714
  Serious: Yes (Hospitalization)
  Sender: FDA-Public Use
  Company Number: GB-ACCORD-180594

PATIENT
  Age: 82 Year
  Sex: Female

DRUGS (13)
  1. CLONAZEPAM. [Suspect]
     Active Substance: CLONAZEPAM
     Indication: PRODUCT USED FOR UNKNOWN INDICATION
     Dosage: AT NIGHT
     Route: 048
  2. INSULIN HUMAN/INSULIN HUMAN INJECTION/ISOPH [Suspect]
     Active Substance: INSULIN HUMAN
     Indication: PRODUCT USED FOR UNKNOWN INDICATION
     Dosage: 10UNITS BREAKFAST AND 20UNITS AT TEATIME
     Route: 058
  3. BENZALKONIUM CHLORIDE/CHLORHEXIDINE HYDROCHLORIDE/ISOPROPYL MYRISTATE/PARAFFIN/LIQUID [Concomitant]
     Dosage: AS NEEDED
     Route: 061
  4. CANDESARTAN. [Concomitant]
     Active Substance: CANDESARTAN
     Route: 048
  5. METFORMIN [Concomitant]
     Active Substance: METFORMIN HYDROCHLORIDE
     Route: 048
  6. FENTANYL. [Concomitant]
     Active Substance: FENTANYL
     Route: 062
  7. IRON [Concomitant]
     Active Substance: IRON
     Route: 048
  8. GABAPENTIN. [Suspect]
     Active Substance: GABAPENTIN
     Indication: PRODUCT USED FOR UNKNOWN INDICATION
     Route: 048
  9. LANSOPRAZOLE. [Concomitant]
     Active Substance: LANSOPRAZOLE
     Route: 048
  10. PARACETAMOL [Concomitant]
     Active Substance: ACETAMINOPHEN
     Dosage: 1-2 FOUR TIMES PER DAY AS NEEDED
     Route: 048
  11. SIMVASTATIN. [Concomitant]
     Active Substance: SIMVASTATIN
     Dosage: AT NIGHT
     Route: 048
  12. FUROSEMIDE. [Concomitant]
     Active Substance: FUROSEMIDE
     Route: 048
  13. CLOPIDOGREL [Concomitant]
     Active Substance: CLOPIDOGREL BISULFATE
     Route: 048

REACTIONS (5)
  - Somnolence [Unknown]
  - Hypoglycaemia [Unknown]
  - Fall [Unknown]
  - Lethargy [Unknown]
  - Confusional state [Recovered/Resolved]

NARRATIVE: CASE EVENT DATE: 20200321
